FAERS Safety Report 5284184-1 (Version None)
Quarter: 2007Q1

REPORT INFORMATION
  Report Type: 
  Country: None (occurrence: None)
  Receive Date: 20070328
  Receipt Date: 20070319
  Transmission Date: 20070707
  Serious: Yes (Other)
  Sender: FDA-Public Use
  Company Number: JPI-P-000810

PATIENT
  Age: 53 Year
  Sex: Female

DRUGS (4)
  1. XYREM [Suspect]
     Indication: SLEEP APNOEA SYNDROME
     Dosage: 4.5 GM (2.25 GM, 2 IN 1 D) ORAL; 6 MG (3 MG, 2 IN 1 D) ORAL; 5 GM (2.5 GM, 2 IN1 D) ORAL; 2.25 GM OR
     Route: 048
     Dates: start: 20070223, end: 20070224
  2. XYREM [Suspect]
     Indication: SLEEP APNOEA SYNDROME
     Dosage: 4.5 GM (2.25 GM, 2 IN 1 D) ORAL; 6 MG (3 MG, 2 IN 1 D) ORAL; 5 GM (2.5 GM, 2 IN1 D) ORAL; 2.25 GM OR
     Route: 048
     Dates: start: 20070225, end: 20070225
  3. XYREM [Suspect]
     Indication: SLEEP APNOEA SYNDROME
     Dosage: 4.5 GM (2.25 GM, 2 IN 1 D) ORAL; 6 MG (3 MG, 2 IN 1 D) ORAL; 5 GM (2.5 GM, 2 IN1 D) ORAL; 2.25 GM OR
     Route: 048
     Dates: start: 20070226, end: 20070301
  4. XYREM [Suspect]
     Indication: SLEEP APNOEA SYNDROME
     Dosage: 4.5 GM (2.25 GM, 2 IN 1 D) ORAL; 6 MG (3 MG, 2 IN 1 D) ORAL; 5 GM (2.5 GM, 2 IN1 D) ORAL; 2.25 GM OR
     Route: 048
     Dates: start: 20070301, end: 20070318

REACTIONS (7)
  - APNOEA [None]
  - CONVULSION [None]
  - DROOLING [None]
  - FEELING ABNORMAL [None]
  - MEMORY IMPAIRMENT [None]
  - MENTAL IMPAIRMENT [None]
  - VOMITING [None]
